FAERS Safety Report 8793665 (Version 1)
Quarter: 2012Q4

REPORT INFORMATION
  Report Type: 
  Country: CN (occurrence: CN)
  Receive Date: 20120918
  Receipt Date: 20120918
  Transmission Date: 20130627
  Serious: Yes (Death, Other)
  Sender: FDA-Public Use
  Company Number: PHHY2004CN005671

PATIENT
  Sex: Female

DRUGS (1)
  1. GLIVEC [Suspect]
     Dosage: 600 mg
     Dates: start: 20031202

REACTIONS (3)
  - Death [Fatal]
  - Haematotoxicity [Unknown]
  - Drug intolerance [Unknown]
